APPROVED DRUG PRODUCT: CILOXAN
Active Ingredient: CIPROFLOXACIN HYDROCHLORIDE
Strength: EQ 0.3% BASE
Dosage Form/Route: SOLUTION/DROPS;OPHTHALMIC
Application: N019992 | Product #001 | TE Code: AT
Applicant: SANDOZ INC
Approved: Dec 31, 1990 | RLD: Yes | RS: Yes | Type: RX